FAERS Safety Report 9674660 (Version 1)
Quarter: 2013Q4

REPORT INFORMATION
  Report Type: Spontaneous
  Country: US (occurrence: None)
  Receive Date: 20131106
  Receipt Date: 20131106
  Transmission Date: 20140711
  Serious: Yes (Disabling)
  Sender: FDA-Public Use
  Company Number: None

PATIENT
  Age: 14 Day
  Sex: Male
  Weight: 4.08 kg

DRUGS (1)
  1. RIBAVIRIN [Suspect]
     Indication: RESPIRATORY SYNCYTIAL VIRUS INFECTION
     Route: 055

REACTIONS (3)
  - Otitis media [None]
  - Deafness [None]
  - Tympanic membrane perforation [None]
